FAERS Safety Report 9741118 (Version 1)
Quarter: 2013Q4

REPORT INFORMATION
  Report Type: Spontaneous
  Country: US (occurrence: US)
  Receive Date: 20131209
  Receipt Date: 20131209
  Transmission Date: 20140711
  Serious: No
  Sender: FDA-Public Use
  Company Number: US-GILEAD-2013-0089490

PATIENT
  Sex: Female

DRUGS (3)
  1. LETAIRIS [Suspect]
     Indication: PRODUCT USED FOR UNKNOWN INDICATION
     Dosage: 10 MG, QD
     Dates: start: 201210
  2. TYVASO [Concomitant]
     Dosage: 12 DF, QID
     Route: 055
  3. WARFARIN SODIUM [Concomitant]

REACTIONS (2)
  - Diarrhoea [Unknown]
  - Headache [Unknown]
